FAERS Safety Report 18073291 (Version 10)
Quarter: 2021Q2

REPORT INFORMATION
  Report Type: Spontaneous
  Country: US (occurrence: US)
  Receive Date: 20200727
  Receipt Date: 20210413
  Transmission Date: 20210717
  Serious: Yes (Hospitalization, Other)
  Sender: FDA-Public Use
  Company Number: US-PFIZER INC-2019562931

PATIENT
  Age: 62 Year
  Sex: Male

DRUGS (2)
  1. INLYTA [Suspect]
     Active Substance: AXITINIB
     Indication: RENAL CANCER
     Dosage: 10 MG, CYCLIC (5 MG TWICE A DAY, EVERY 21 DAY)
     Route: 048
  2. INLYTA [Suspect]
     Active Substance: AXITINIB
     Indication: DEHYDRATION

REACTIONS (15)
  - Diarrhoea [Recovered/Resolved]
  - Brain neoplasm [Unknown]
  - Paralysis [Unknown]
  - Asthenia [Unknown]
  - Amnesia [Unknown]
  - Illness [Unknown]
  - Constipation [Recovered/Resolved]
  - Second primary malignancy [Unknown]
  - Colon cancer [Unknown]
  - Communication disorder [Unknown]
  - Gastroenteritis bacterial [Unknown]
  - Cerebrovascular accident [Unknown]
  - Neoplasm recurrence [Unknown]
  - Cognitive disorder [Unknown]
  - Dyspnoea [Unknown]

NARRATIVE: CASE EVENT DATE: 202103
